FAERS Safety Report 14812009 (Version 3)
Quarter: 2018Q3

REPORT INFORMATION
  Report Type: Report from Study
  Country: JP (occurrence: JP)
  Receive Date: 20180425
  Receipt Date: 20180705
  Transmission Date: 20181010
  Serious: Yes (Hospitalization, Other)
  Sender: FDA-Public Use
  Company Number: JP-AMGEN-JPNNI2018054494

PATIENT
  Age: 74 Year
  Sex: Female

DRUGS (12)
  1. EDIROL [Concomitant]
     Active Substance: ELDECALCITOL
     Dosage: UNK
     Dates: end: 20170411
  2. FULSTAN [Concomitant]
     Dosage: UNK
     Dates: start: 20170705, end: 20170829
  3. ETELCALCETIDE [Suspect]
     Active Substance: ETELCALCETIDE
     Dosage: 2.5 MG, 3 TIMES/WK
     Route: 042
     Dates: start: 20170510, end: 201711
  4. WARFARIN [Suspect]
     Active Substance: WARFARIN
     Indication: PRODUCT USED FOR UNKNOWN INDICATION
     Dosage: UNK
     Route: 065
  5. OXAROL [Concomitant]
     Active Substance: MAXACALCITOL
     Dosage: 5 MCG, UNK
     Dates: end: 20170818
  6. ALFAROL [Concomitant]
     Active Substance: ALFACALCIDOL
     Dosage: 0.5 MCG, UNK
     Dates: start: 20170830
  7. OXAROL [Concomitant]
     Active Substance: MAXACALCITOL
     Dosage: UNK
     Dates: start: 20171108, end: 20180115
  8. OXAROL [Concomitant]
     Active Substance: MAXACALCITOL
     Dosage: 2.5 MUG, UNK
     Dates: start: 20180326
  9. ALFAROL [Concomitant]
     Active Substance: ALFACALCIDOL
     Dosage: 0.25 MCG, UNK
     Dates: start: 20170402, end: 20170704
  10. ROCALTROL [Concomitant]
     Active Substance: CALCITRIOL
     Dosage: UNK
     Dates: start: 20180122, end: 20180323
  11. ETELCALCETIDE [Suspect]
     Active Substance: ETELCALCETIDE
     Indication: HYPERPARATHYROIDISM SECONDARY
     Dosage: 5 MG, 3 TIMES/WK
     Route: 042
     Dates: start: 20170407, end: 201705
  12. ETELCALCETIDE [Suspect]
     Active Substance: ETELCALCETIDE
     Dosage: 5 MG, 3 TIMES/WK
     Route: 042
     Dates: start: 20171117

REACTIONS (1)
  - Gastric ulcer [Recovered/Resolved]

NARRATIVE: CASE EVENT DATE: 20180222
